FAERS Safety Report 6258468-4 (Version None)
Quarter: 2009Q3

REPORT INFORMATION
  Report Type: 
  Country: None (occurrence: None)
  Receive Date: 20090707
  Receipt Date: 20090625
  Transmission Date: 20100115
  Serious: Yes (Other)
  Sender: FDA-Public Use
  Company Number: GB-PFIZER INC-2009231997

PATIENT
  Age: 61 Year

DRUGS (4)
  1. CHAMPIX [Suspect]
     Indication: SMOKING CESSATION THERAPY
     Dosage: 1 MG, 1X/DAY
     Route: 048
     Dates: start: 20090408
  2. RAMIPRIL [Concomitant]
     Dosage: 2.5 MG, UNK
     Dates: start: 20070701
  3. SIMVASTATIN [Concomitant]
     Indication: BLOOD CHOLESTEROL
     Dosage: UNK
     Dates: start: 20070701
  4. SOLPADOL [Concomitant]
     Indication: PAIN
     Dosage: UNK
     Dates: start: 20070306

REACTIONS (2)
  - HANGOVER [None]
  - TREMOR [None]
